FAERS Safety Report 6581248-7 (Version None)
Quarter: 2010Q1

REPORT INFORMATION
  Report Type: 
  Country: None (occurrence: None)
  Receive Date: 20100215
  Receipt Date: 20100203
  Transmission Date: 20100710
  Serious: Yes (Other)
  Sender: FDA-Public Use
  Company Number: US-BAYER-200942751NA

PATIENT
  Age: 23 Year
  Sex: Female
  Weight: 128 kg

DRUGS (1)
  1. MIRENA [Suspect]
     Indication: DRUG USE FOR UNKNOWN INDICATION
     Dosage: CONTINUOUS
     Dates: start: 20091109, end: 20091216

REACTIONS (2)
  - MEDICAL DEVICE COMPLICATION [None]
  - UTERINE PERFORATION [None]
